FAERS Safety Report 15429904 (Version 1)
Quarter: 2018Q3

REPORT INFORMATION
  Report Type: Spontaneous
  Country: US (occurrence: US)
  Receive Date: 20180926
  Receipt Date: 20180926
  Transmission Date: 20181010
  Serious: Yes (Other)
  Sender: FDA-Public Use
  Company Number: US-SA-2018SA261646

PATIENT
  Age: 43 Year
  Sex: Male

DRUGS (12)
  1. AMBIEN [Suspect]
     Active Substance: ZOLPIDEM TARTRATE
     Route: 065
  2. GABAPENTIN. [Concomitant]
     Active Substance: GABAPENTIN
     Dosage: 1 DF, TID
     Route: 048
  3. PROAIR HFA [Concomitant]
     Active Substance: ALBUTEROL SULFATE
  4. ZYRTEC R [Concomitant]
     Dosage: 1 DF, QD
  5. VITAMIN D3 [Concomitant]
     Active Substance: CHOLECALCIFEROL
     Route: 048
  6. OXYCODONE [Concomitant]
     Active Substance: OXYCODONE
     Dosage: 4 DF, QD
  7. VENLAFAXINE HCL [Concomitant]
     Active Substance: VENLAFAXINE HYDROCHLORIDE
     Dosage: 150 MG
     Route: 048
  8. PRAVASTATIN. [Concomitant]
     Active Substance: PRAVASTATIN
     Dosage: 40 MG
     Route: 048
  9. ALPRAZOLAM. [Concomitant]
     Active Substance: ALPRAZOLAM
  10. PROPRANOLOL HCL [Concomitant]
     Active Substance: PROPRANOLOL HYDROCHLORIDE
  11. NEXIUM 24HR [Concomitant]
     Active Substance: ESOMEPRAZOLE MAGNESIUM
     Dosage: 1 DF, BID
     Route: 048
  12. XARELTO [Concomitant]
     Active Substance: RIVAROXABAN

REACTIONS (28)
  - Contusion [Unknown]
  - Insomnia [Unknown]
  - Hypersomnia [Unknown]
  - Back pain [Unknown]
  - Pain in extremity [Unknown]
  - Spinal osteoarthritis [Unknown]
  - Hernia [Unknown]
  - Sleep paralysis [Unknown]
  - Memory impairment [Unknown]
  - Major depression [Unknown]
  - Seizure [Unknown]
  - Sleep apnoea syndrome [Unknown]
  - Neck pain [Unknown]
  - Blood disorder [Unknown]
  - Confusional arousal [Unknown]
  - Hypoaesthesia [Unknown]
  - Diarrhoea [Unknown]
  - Sciatica [Unknown]
  - Restless legs syndrome [Unknown]
  - Ulcer [Unknown]
  - Intentional product misuse [Unknown]
  - Asthenia [Unknown]
  - Arthralgia [Unknown]
  - Snoring [Unknown]
  - Headache [Unknown]
  - Anxiety disorder [Unknown]
  - Abdominal pain [Unknown]
  - Fall [Unknown]
